FAERS Safety Report 7241560-5 (Version None)
Quarter: 2011Q1

REPORT INFORMATION
  Report Type: 
  Country: None (occurrence: None)
  Receive Date: 20110124
  Receipt Date: 20110112
  Transmission Date: 20110831
  Serious: Yes (Hospitalization, Other)
  Sender: FDA-Public Use
  Company Number: FI-MERCK-1101FIN00012

PATIENT
  Age: 51 Year
  Sex: Female

DRUGS (9)
  1. METHYLPREDNISOLONE [Concomitant]
     Route: 042
  2. EMEND [Suspect]
     Indication: VOMITING
     Route: 048
     Dates: start: 20100126, end: 20100126
  3. DOXORUBICIN HYDROCHLORIDE [Suspect]
     Indication: OVARIAN CANCER
     Route: 065
     Dates: start: 20100125
  4. METOCLOPRAMIDE HYDROCHLORIDE [Concomitant]
     Route: 065
  5. EMEND [Suspect]
     Indication: NAUSEA
     Route: 048
     Dates: start: 20100126, end: 20100126
  6. CORTICOSTEROIDS (UNSPECIFIED) [Concomitant]
     Indication: PREMEDICATION
     Route: 042
     Dates: start: 20100101
  7. ONDANSETRON HYDROCHLORIDE [Concomitant]
     Route: 065
  8. TRABECTEDIN [Suspect]
     Indication: OVARIAN CANCER
     Route: 042
     Dates: start: 20100125
  9. TROPISETRON HYDROCHLORIDE [Concomitant]
     Route: 048

REACTIONS (5)
  - SUBILEUS [None]
  - HEPATIC ENZYME INCREASED [None]
  - NAUSEA [None]
  - DRUG INTERACTION [None]
  - VOMITING [None]
